FAERS Safety Report 11617588 (Version 2)
Quarter: 2015Q4

REPORT INFORMATION
  Report Type: Spontaneous
  Country: FR (occurrence: FR)
  Receive Date: 20151009
  Receipt Date: 20151209
  Transmission Date: 20160304
  Serious: Yes (Death, Other)
  Sender: FDA-Public Use
  Company Number: FR-SA-2015SA152556

PATIENT
  Sex: Male

DRUGS (12)
  1. NEBILOX [Concomitant]
     Active Substance: NEBIVOLOL HYDROCHLORIDE
     Route: 048
  2. ENANTONE LP [Concomitant]
     Active Substance: LEUPROLIDE ACETATE
     Indication: PROSTATE CANCER
     Dosage: DOSE:1 UNIT(S)
     Route: 030
  3. TAHOR [Concomitant]
     Active Substance: ATORVASTATIN CALCIUM
     Dosage: DOSE:1 UNIT(S)
     Route: 048
  4. MOPRAL [Concomitant]
     Active Substance: OMEPRAZOLE SODIUM
     Dosage: DOSE:1 UNIT(S)
     Route: 048
  5. MIRCERA [Concomitant]
     Active Substance: METHOXY POLYETHYLENE GLYCOL-EPOETIN BETA
     Route: 058
  6. CORTANCYL [Concomitant]
     Active Substance: PREDNISONE
     Route: 048
  7. OROCAL D(3) [Concomitant]
     Active Substance: CALCIUM CARBONATE\CHOLECALCIFEROL
     Dosage: DOSE:1 UNIT(S)
     Route: 048
  8. NOVORAPID [Concomitant]
     Active Substance: INSULIN ASPART
     Route: 058
  9. PLAVIX [Suspect]
     Active Substance: CLOPIDOGREL BISULFATE
     Indication: STENT PLACEMENT
     Dosage: DOSE:1 UNIT(S)
     Route: 048
     Dates: start: 20150823, end: 20150930
  10. KARDEGIC [Concomitant]
     Active Substance: ASPIRIN LYSINE
     Dosage: DOSE:1 UNIT(S)
     Route: 048
  11. LASILIX [Concomitant]
     Active Substance: FUROSEMIDE
     Dosage: DOSE:0.5 UNIT(S)
     Route: 048
  12. LEVEMIR [Concomitant]
     Active Substance: INSULIN DETEMIR
     Route: 058

REACTIONS (1)
  - Toxic skin eruption [Fatal]

NARRATIVE: CASE EVENT DATE: 20150925
